FAERS Safety Report 26143269 (Version 2)
Quarter: 2025Q4

REPORT INFORMATION
  Report Type: Report from Study
  Country: EU (occurrence: EU)
  Receive Date: 20251211
  Receipt Date: 20251218
  Transmission Date: 20260118
  Serious: Yes (Hospitalization)
  Sender: ABBVIE
  Company Number: EU-ABBVIE-6495506

PATIENT
  Age: 78 Year
  Sex: Male
  Weight: 74 kg

DRUGS (2)
  1. CARBIDOPA\LEVODOPA [Suspect]
     Active Substance: CARBIDOPA\LEVODOPA
     Indication: Parkinson^s disease
     Route: 050
     Dates: start: 20220302
  2. CARBIDOPA\LEVODOPA [Suspect]
     Active Substance: CARBIDOPA\LEVODOPA

REACTIONS (9)
  - Respiratory tract infection [Unknown]
  - Stoma site infection [Unknown]
  - Condition aggravated [Unknown]
  - Stoma site hypergranulation [Recovered/Resolved]
  - Stoma site abscess [Recovered/Resolved]
  - Pyrexia [Recovered/Resolved]
  - Dyskinesia [Unknown]
  - Stoma site discharge [Unknown]
  - Stoma site infection [Unknown]

NARRATIVE: CASE EVENT DATE: 20250101
